FAERS Safety Report 11588575 (Version 1)
Quarter: 2015Q4

REPORT INFORMATION
  Report Type: Spontaneous
  Country: US (occurrence: None)
  Receive Date: 20151001
  Receipt Date: 20151001
  Transmission Date: 20160304
  Serious: Yes (Disabling, Other)
  Sender: FDA-Public Use
  Company Number: None

PATIENT
  Age: 61 Year
  Sex: Male
  Weight: 131.54 kg

DRUGS (6)
  1. STRATTERA [Suspect]
     Active Substance: ATOMOXETINE HYDROCHLORIDE
     Indication: MEMORY IMPAIRMENT
     Dosage: 1 PILL
     Route: 048
     Dates: start: 20060901, end: 20150531
  2. BI-PAP NIGHTLY [Concomitant]
  3. AMLODIPINE BESYLATE. [Concomitant]
     Active Substance: AMLODIPINE BESYLATE
  4. LABETALOL [Concomitant]
     Active Substance: LABETALOL\LABETALOL HYDROCHLORIDE
  5. HYDROCHLORTHIAZIDE [Concomitant]
     Active Substance: HYDROCHLOROTHIAZIDE
  6. STRATTERA [Suspect]
     Active Substance: ATOMOXETINE HYDROCHLORIDE
     Indication: CONSTIPATION
     Dosage: 1 PILL
     Route: 048
     Dates: start: 20060901, end: 20150531

REACTIONS (11)
  - Feeling abnormal [None]
  - Asthenia [None]
  - Pain in extremity [None]
  - Dry mouth [None]
  - Weight increased [None]
  - Myalgia [None]
  - Arthralgia [None]
  - Urinary tract disorder [None]
  - Fatigue [None]
  - Drug withdrawal syndrome [None]
  - Hyperhidrosis [None]

NARRATIVE: CASE EVENT DATE: 20150601
